FAERS Safety Report 13988917 (Version 1)
Quarter: 2017Q3

REPORT INFORMATION
  Report Type: Other
  Country: GB (occurrence: US)
  Receive Date: 20170919
  Receipt Date: 20170919
  Transmission Date: 20171128
  Serious: Yes (Life-Threatening, Other)
  Sender: FDA-Public Use
  Company Number: US-INTERNATIONAL MEDICATION SYSTEMS, LIMITED-2026900

PATIENT
  Age: 6 Year
  Sex: Male

DRUGS (2)
  1. EPINEPHRINE PITKIN^S [Suspect]
     Active Substance: EPINEPHRINE
     Indication: LOCAL ANAESTHESIA
  2. BUPIVACAINE 0.5% AT 3 MG/KG PITKIN^S SOLUTION [Suspect]
     Active Substance: BUPIVACAINE

REACTIONS (4)
  - Incorrect route of drug administration [Recovered/Resolved]
  - End-tidal CO2 decreased [Recovered/Resolved]
  - Toxicity to various agents [Recovered/Resolved]
  - Bradycardia [Recovered/Resolved]
